FAERS Safety Report 8005288-6 (Version None)
Quarter: 2011Q4

REPORT INFORMATION
  Report Type: 
  Country: None (occurrence: None)
  Receive Date: 20111223
  Receipt Date: 20111219
  Transmission Date: 20120403
  Serious: Yes (Other)
  Sender: FDA-Public Use
  Company Number: US-VERTEX PHARMACEUTICALS INC.-AE-2011-004904

PATIENT
  Sex: Female
  Weight: 58.112 kg

DRUGS (6)
  1. INCIVEK [Suspect]
     Indication: HEPATITIS C
     Dates: start: 20111010, end: 20111112
  2. ZYRTEC [Concomitant]
  3. RIBAVIRIN [Concomitant]
     Indication: HEPATITIS C
     Dates: start: 20111010, end: 20111121
  4. PEGASYS [Concomitant]
     Indication: HEPATITIS C
     Dates: start: 20111010, end: 20111121
  5. TRIAMCINOLONE [Concomitant]
  6. HYDROXYZINE [Concomitant]

REACTIONS (1)
  - DRUG RASH WITH EOSINOPHILIA AND SYSTEMIC SYMPTOMS [None]
